FAERS Safety Report 5488995-9 (Version None)
Quarter: 2007Q4

REPORT INFORMATION
  Report Type: 
  Country: None (occurrence: None)
  Receive Date: 20071016
  Receipt Date: 20071005
  Transmission Date: 20080405
  Serious: Yes (Death)
  Sender: FDA-Public Use
  Company Number: 162464ISR

PATIENT
  Age: 62 Year
  Sex: Female

DRUGS (1)
  1. MIRTAZAPINE [Suspect]

REACTIONS (2)
  - DROWNING [None]
  - OVERDOSE [None]
